FAERS Safety Report 10227407 (Version 3)
Quarter: 2014Q2

REPORT INFORMATION
  Report Type: Spontaneous
  Country: JP (occurrence: JP)
  Receive Date: 20140610
  Receipt Date: 20140623
  Transmission Date: 20141212
  Serious: Yes (Disabling)
  Sender: FDA-Public Use
  Company Number: JP-B.I. PHARMACEUTICALS,INC./RIDGEFIELD-2014-BI-17405NB

PATIENT
  Age: 82 Year
  Sex: Female
  Weight: 44 kg

DRUGS (11)
  1. TRAZENTA [Suspect]
     Indication: DIABETES MELLITUS
     Dosage: 5 MG
     Route: 048
     Dates: start: 20130817, end: 20131218
  2. SUREPOST [Concomitant]
     Indication: DIABETES MELLITUS
     Dosage: 0.75 MG
     Route: 048
     Dates: start: 20131010
  3. SEIBULE [Concomitant]
     Indication: DIABETES MELLITUS
     Dosage: 150 MG
     Route: 048
     Dates: start: 20130820
  4. LEVEMIR [Concomitant]
     Indication: DIABETES MELLITUS
     Dosage: 3 U
     Route: 058
     Dates: start: 20080812
  5. BAYASPIRIN [Concomitant]
     Dosage: 100 MG
     Route: 048
  6. LIPITOR [Concomitant]
     Dosage: 10 MG
     Route: 048
  7. FEBURIC [Concomitant]
     Dosage: 20 MG
     Route: 048
     Dates: start: 20120518
  8. NEXIUM [Concomitant]
     Dosage: 20 MG
     Route: 065
     Dates: start: 20130417
  9. LASIX [Concomitant]
     Dosage: 20 MG
     Route: 065
  10. PRORENAL [Concomitant]
     Dosage: 15 MCG
     Route: 065
  11. MUCODYNE [Concomitant]
     Dosage: 1000 MG
     Route: 065
     Dates: start: 20130718

REACTIONS (1)
  - Rheumatoid arthritis [Not Recovered/Not Resolved]
